FAERS Safety Report 8789924 (Version 1)
Quarter: 2012Q4

REPORT INFORMATION
  Report Type: 
  Country: CN (occurrence: CN)
  Receive Date: 20120917
  Receipt Date: 20120917
  Transmission Date: 20130627
  Serious: Yes (Hospitalization)
  Sender: FDA-Public Use
  Company Number: CN-ELI_LILLY_AND_COMPANY-CN201209003901

PATIENT
  Age: 62 Year
  Sex: Female

DRUGS (1)
  1. HUMULIN 30% REGULAR, 70% NPH [Suspect]
     Dosage: UNK
     Dates: start: 20120826

REACTIONS (3)
  - Diabetes mellitus [Unknown]
  - Dizziness [Unknown]
  - Nausea [Unknown]
